FAERS Safety Report 7036172-2 (Version None)
Quarter: 2010Q4

REPORT INFORMATION
  Report Type: 
  Country: None (occurrence: None)
  Receive Date: 20101008
  Receipt Date: 20100628
  Transmission Date: 20110411
  Serious: No
  Sender: FDA-Public Use
  Company Number: US-BRISTOL-MYERS SQUIBB COMPANY-15125156

PATIENT
  Age: 50 Year
  Sex: Female
  Weight: 77 kg

DRUGS (1)
  1. AVAPRO [Suspect]
     Indication: HYPERTENSION
     Dosage: 1/2 TABLET, ABOUT 3 YEARS. PAST 2 WEEKS 1 TABLET/DAY

REACTIONS (2)
  - BLOOD PRESSURE INCREASED [None]
  - DYSGEUSIA [None]
